FAERS Safety Report 6258551-3 (Version None)
Quarter: 2009Q3

REPORT INFORMATION
  Report Type: 
  Country: None (occurrence: None)
  Receive Date: 20090707
  Receipt Date: 20090625
  Transmission Date: 20100115
  Serious: Yes (Death)
  Sender: FDA-Public Use
  Company Number: JP-PFIZER INC-2009233496

PATIENT
  Age: 73 Year

DRUGS (1)
  1. GABAPEN [Suspect]
     Indication: PAIN
     Dosage: 200 MG, 1X/DAY

REACTIONS (3)
  - CERVIX CARCINOMA [None]
  - DIZZINESS [None]
  - SOMNOLENCE [None]
